FAERS Safety Report 16067614 (Version 3)
Quarter: 2019Q2

REPORT INFORMATION
  Report Type: Report from Study
  Country: CA (occurrence: CA)
  Receive Date: 20190313
  Receipt Date: 20190417
  Transmission Date: 20190711
  Serious: Yes (Other)
  Sender: FDA-Public Use
  Company Number: CA-GLAXOSMITHKLINE-CA2018GSK197215

PATIENT
  Age: 78 Year
  Sex: Female

DRUGS (3)
  1. OXYGEN. [Concomitant]
     Active Substance: OXYGEN
     Indication: PRODUCT USED FOR UNKNOWN INDICATION
     Dosage: UNK
  2. MEPOLIZUMAB [Suspect]
     Active Substance: MEPOLIZUMAB
     Dosage: 100 MG, Z, MONTHLY
     Route: 042
  3. MEPOLIZUMAB [Suspect]
     Active Substance: MEPOLIZUMAB
     Indication: ASTHMA
     Dosage: 100 MG, MONTHLY
     Route: 042
     Dates: start: 20180814

REACTIONS (9)
  - Feeling of body temperature change [Unknown]
  - Fatigue [Unknown]
  - Influenza [Unknown]
  - Dizziness [Unknown]
  - Nausea [Unknown]
  - Headache [Unknown]
  - Diarrhoea [Unknown]
  - Diverticulitis [Unknown]
  - Myalgia [Unknown]

NARRATIVE: CASE EVENT DATE: 201808
